FAERS Safety Report 7342749-7 (Version None)
Quarter: 2011Q1

REPORT INFORMATION
  Report Type: 
  Country: None (occurrence: None)
  Receive Date: 20110310
  Receipt Date: 20110224
  Transmission Date: 20110831
  Serious: Yes (Life-Threatening)
  Sender: FDA-Public Use
  Company Number: TR-SANOFI-AVENTIS-2011SA004920

PATIENT
  Age: 64 Year
  Sex: Male
  Weight: 105 kg

DRUGS (7)
  1. OXALIPLATIN [Suspect]
     Route: 042
     Dates: start: 20110121, end: 20110121
  2. OXALIPLATIN [Suspect]
     Route: 042
     Dates: start: 20100801, end: 20100801
  3. OXALIPLATIN [Suspect]
     Indication: COLON CANCER
     Route: 042
     Dates: start: 20110121, end: 20110121
  4. FOLINIC ACID [Concomitant]
     Route: 042
     Dates: start: 20110101, end: 20110101
  5. 5-FU [Concomitant]
     Route: 042
     Dates: start: 20110101, end: 20110101
  6. FOLINIC ACID [Concomitant]
     Indication: COLON CANCER
     Route: 042
     Dates: start: 20100801, end: 20100801
  7. 5-FU [Concomitant]
     Indication: COLON CANCER
     Route: 042
     Dates: start: 20100801, end: 20100801

REACTIONS (3)
  - HYPOTENSION [None]
  - RESPIRATORY ARREST [None]
  - LOSS OF CONSCIOUSNESS [None]
